FAERS Safety Report 6811978-0 (Version None)
Quarter: 2010Q3

REPORT INFORMATION
  Report Type: 
  Country: None (occurrence: None)
  Receive Date: 20100701
  Receipt Date: 20100330
  Transmission Date: 20110219
  Serious: Yes (Death, Hospitalization, Other)
  Sender: FDA-Public Use
  Company Number: US-ASTRAZENECA-2006UW01799

PATIENT
  Age: 58 Year
  Sex: Male
  Weight: 99.8 kg

DRUGS (20)
  1. SEROQUEL [Suspect]
     Route: 048
     Dates: start: 19970101, end: 20050501
  2. SEROQUEL [Suspect]
     Route: 048
     Dates: start: 20010901
  3. ASPIRIN [Concomitant]
     Dates: start: 20031202
  4. PLAVIX [Concomitant]
     Dates: start: 20031202
  5. HYDROXYZINE [Concomitant]
     Dates: start: 20040101
  6. LISINOPRIL [Concomitant]
     Dates: start: 20040101
  7. TOPROL-XL [Concomitant]
     Dates: start: 20030101
  8. ZOCOR [Concomitant]
     Dates: start: 20040101
  9. LASIX [Concomitant]
     Dosage: 20 MG EVERY DAY, 40 MG EVERY DAY
     Dates: start: 20031202
  10. SINGULAIR [Concomitant]
     Dates: start: 20040101
  11. TEGRETOL [Concomitant]
     Dates: start: 20040101
  12. TRAZODONE HYDROCHLORIDE [Concomitant]
     Dates: start: 20030101
  13. GLYBURIDE [Concomitant]
     Dates: start: 20040101
  14. EFFEXOR [Concomitant]
     Dates: start: 20030101
  15. ACCUPRIL [Concomitant]
     Route: 048
     Dates: start: 20030101
  16. AMIODARONE [Concomitant]
     Dosage: 200MG ONE TABLET TWICE A DAY FOR 7 DAYS THEN 1 TABLET EVERY DAY
     Route: 048
     Dates: start: 20050514
  17. DIGOXIN [Concomitant]
     Dates: start: 20050514
  18. COREG [Concomitant]
     Dates: start: 20050514
  19. ALTACE [Concomitant]
     Dates: start: 20050514
  20. LIPITOR [Concomitant]
     Dates: start: 20050514

REACTIONS (12)
  - ANGINA UNSTABLE [None]
  - ARTERIOSCLEROSIS CORONARY ARTERY [None]
  - ATRIAL FIBRILLATION [None]
  - CARDIAC DISORDER [None]
  - CARDIAC FAILURE CONGESTIVE [None]
  - CHEST PAIN [None]
  - CORONARY ARTERY DISEASE [None]
  - DEATH [None]
  - DIABETES MELLITUS [None]
  - EJECTION FRACTION DECREASED [None]
  - LEFT VENTRICULAR DYSFUNCTION [None]
  - MYOCARDIAL INFARCTION [None]
